FAERS Safety Report 4950140-3 (Version None)
Quarter: 2006Q1

REPORT INFORMATION
  Report Type: 
  Country: None (occurrence: None)
  Receive Date: 20060315
  Receipt Date: 20060308
  Transmission Date: 20060701
  Serious: Yes (Life-Threatening)
  Sender: FDA-Public Use
  Company Number: 200610356BYL

PATIENT
  Age: 66 Year
  Sex: Female

DRUGS (1)
  1. AVELOX [Suspect]
     Indication: LARYNGOPHARYNGITIS
     Dosage: 400  MG, QD, ORAL
     Route: 048
     Dates: start: 20060308

REACTIONS (4)
  - CHEST PAIN [None]
  - CYANOSIS [None]
  - PALPITATIONS [None]
  - SHOCK [None]
